FAERS Safety Report 4942159-3 (Version None)
Quarter: 2006Q1

REPORT INFORMATION
  Report Type: 
  Country: None (occurrence: None)
  Receive Date: 20060313
  Receipt Date: 20050808
  Transmission Date: 20060701
  Serious: No
  Sender: FDA-Public Use
  Company Number: US-GLAXOSMITHKLINE-A0569297A

PATIENT
  Age: 27 Year
  Sex: Male

DRUGS (2)
  1. EQUATE NICOTINE GUM 2MG, MINT [Suspect]
  2. NICORETTE [Suspect]
     Dates: start: 20050704

REACTIONS (1)
  - EXTRASYSTOLES [None]
